FAERS Safety Report 7676121-7 (Version None)
Quarter: 2011Q3

REPORT INFORMATION
  Report Type: 
  Country: None (occurrence: None)
  Receive Date: 20110811
  Receipt Date: 20110801
  Transmission Date: 20111222
  Serious: Yes (Hospitalization)
  Sender: FDA-Public Use
  Company Number: US-JNJFOC-20090202752

PATIENT
  Sex: Female
  Weight: 52.8 kg

DRUGS (5)
  1. REMICADE [Suspect]
     Route: 042
     Dates: start: 20050901
  2. CIPROFLOXACIN [Concomitant]
  3. REMICADE [Suspect]
     Indication: INFLAMMATORY BOWEL DISEASE
     Route: 042
     Dates: start: 20050720
  4. REMICADE [Suspect]
     Route: 042
     Dates: start: 20050402, end: 20050720
  5. CERTOLIZUMAB [Concomitant]

REACTIONS (2)
  - PYODERMA GANGRENOSUM [None]
  - STAPHYLOCOCCAL INFECTION [None]
